FAERS Safety Report 6917893-6 (Version None)
Quarter: 2010Q3

REPORT INFORMATION
  Report Type: 
  Country: None (occurrence: None)
  Receive Date: 20100810
  Receipt Date: 20090805
  Transmission Date: 20110219
  Serious: No
  Sender: FDA-Public Use
  Company Number: US-PFIZER INC-2009228903

PATIENT
  Sex: Female
  Weight: 65.3 kg

DRUGS (2)
  1. TOVIAZ [Suspect]
     Indication: HYPERTONIC BLADDER
     Dosage: UNK
     Dates: start: 20090530
  2. ORAL CONTRACEPTIVE NOS [Concomitant]

REACTIONS (1)
  - MENSTRUATION IRREGULAR [None]
